FAERS Safety Report 23716756 (Version 2)
Quarter: 2024Q2

REPORT INFORMATION
  Report Type: Spontaneous
  Country: CA (occurrence: CA)
  Receive Date: 20240408
  Receipt Date: 20240524
  Transmission Date: 20240716
  Serious: Yes (Other)
  Sender: FDA-Public Use
  Company Number: CA-CELLTRION INC.-2024CA008116

PATIENT

DRUGS (12)
  1. INFLECTRA [Suspect]
     Active Substance: INFLIXIMAB-DYYB
     Indication: Colitis ulcerative
     Dosage: 385 MG, Q 0, 2, 6 WEEKS, THEN EVERY 8 WEEKS
     Route: 041
     Dates: start: 20180322, end: 20180504
  2. INFLECTRA [Suspect]
     Active Substance: INFLIXIMAB-DYYB
     Dosage: 730 MG, EVERY 6 WEEK
     Route: 041
     Dates: start: 20180621, end: 20181203
  3. INFLECTRA [Suspect]
     Active Substance: INFLIXIMAB-DYYB
     Dosage: 820 MG, EVERY 6 WEEK
     Route: 041
     Dates: start: 20190114, end: 20190522
  4. INFLECTRA [Suspect]
     Active Substance: INFLIXIMAB-DYYB
     Dosage: 900 MG, EVERY 6 WEEK
     Route: 041
     Dates: start: 20190703, end: 20201207
  5. INFLECTRA [Suspect]
     Active Substance: INFLIXIMAB-DYYB
     Dosage: 10 MG/KG, EVERY 6 WEEK
     Route: 041
     Dates: start: 20210129
  6. INFLECTRA [Suspect]
     Active Substance: INFLIXIMAB-DYYB
     Dosage: 10 MG/KG, EVERY 6 WEEK
     Route: 041
     Dates: start: 20240220
  7. INFLECTRA [Suspect]
     Active Substance: INFLIXIMAB-DYYB
     Dosage: 10 MG/KG, EVERY 6 WEEK (833MG, 5 WEEKS AND 6 DAYS)
     Route: 041
     Dates: start: 20240401
  8. INFLECTRA [Suspect]
     Active Substance: INFLIXIMAB-DYYB
     Dosage: 10 MG/KG, EVERY 6 WEEKS(835 MG)
     Route: 041
     Dates: start: 20240515
  9. ASPIRIN [Concomitant]
     Active Substance: ASPIRIN
     Dosage: UNK
  10. CORTISONE [Concomitant]
     Active Substance: CORTISONE
     Dosage: UNK
  11. SULFASALAZINE [Concomitant]
     Active Substance: SULFASALAZINE
     Dosage: 500 MG, DAILY  DOSE: 9
     Route: 065
     Dates: start: 2003
  12. TYLENOL [Concomitant]
     Active Substance: ACETAMINOPHEN
     Dosage: UNK

REACTIONS (1)
  - Condition aggravated [Recovered/Resolved]
